FAERS Safety Report 5092940-8 (Version None)
Quarter: 2006Q3

REPORT INFORMATION
  Report Type: 
  Country: None (occurrence: None)
  Receive Date: 20060828
  Receipt Date: 20060815
  Transmission Date: 20061208
  Serious: Yes (Life-Threatening, Hospitalization)
  Sender: FDA-Public Use
  Company Number: GXKR2006GB04806

PATIENT
  Age: 86 Year
  Sex: Female

DRUGS (11)
  1. ASPIRIN [Suspect]
     Indication: CEREBROVASCULAR ACCIDENT PROPHYLAXIS
     Dosage: 75 MG, QD, ORAL
     Route: 048
     Dates: start: 20060410
  2. CLOPIDOGREL [Suspect]
     Indication: ACUTE CORONARY SYNDROME
     Dosage: 75 MG, QD, ORAL
     Route: 048
     Dates: start: 19930101, end: 20060530
  3. ATORVASTATIN CALCIUM [Concomitant]
  4. BISOPROLOL FUMARATE [Concomitant]
  5. CO-CODAMOL (CODEINE PHOSPHATE, PARACETAMOL) [Concomitant]
  6. DIGOXIN [Concomitant]
  7. FRUSEMIDE (FRUSEMIDE) [Concomitant]
  8. NITROGLYCERIN [Concomitant]
  9. ISOSORBIDE MONONITRATE [Concomitant]
  10. LEVOTHYROXINE SODIUM [Concomitant]
  11. VALSARTAN [Concomitant]

REACTIONS (2)
  - HAEMATEMESIS [None]
  - ISCHAEMIC STROKE [None]
